FAERS Safety Report 12604959 (Version 1)
Quarter: 2016Q3

REPORT INFORMATION
  Report Type: Spontaneous
  Country: NG (occurrence: NG)
  Receive Date: 20160728
  Receipt Date: 20160728
  Transmission Date: 20161109
  Serious: Yes (Death, Other)
  Sender: FDA-Public Use
  Company Number: NG-ELI_LILLY_AND_COMPANY-NG201607010737

PATIENT
  Age: 45 Year
  Sex: Female

DRUGS (3)
  1. E MAL [Concomitant]
     Dosage: 150 MG, UNK
  2. HUMULIN R [Suspect]
     Active Substance: INSULIN HUMAN
     Indication: HYPERGLYCAEMIA
     Dosage: 10 IU, UNKNOWN
     Route: 042
     Dates: start: 20160719, end: 20160722
  3. FLAGYL [Concomitant]
     Active Substance: METRONIDAZOLE\METRONIDAZOLE HYDROCHLORIDE
     Dosage: 500 MG, UNK
     Route: 042

REACTIONS (3)
  - Death [Fatal]
  - Coma [Unknown]
  - Blood glucose increased [Not Recovered/Not Resolved]
